FAERS Safety Report 23710238 (Version 1)
Quarter: 2024Q2

REPORT INFORMATION
  Report Type: Spontaneous
  Country: ES (occurrence: ES)
  Receive Date: 20240405
  Receipt Date: 20240405
  Transmission Date: 20240715
  Serious: Yes (Other)
  Sender: FDA-Public Use
  Company Number: None

PATIENT
  Age: 31 Year
  Sex: Male

DRUGS (5)
  1. ACETAMINOPHEN [Suspect]
     Active Substance: ACETAMINOPHEN
     Indication: Analgesic therapy
     Dosage: 1-1-1
     Route: 048
     Dates: start: 20230808, end: 20230818
  2. BEMIPARIN SODIUM [Suspect]
     Active Substance: BEMIPARIN SODIUM
     Indication: Prophylaxis
     Dosage: 3,500 IU INJECTABLE 0.2ML PREFILLED SYRINGE, 0-0-1
     Route: 058
     Dates: start: 20230811, end: 20230818
  3. OMEPRAZOLE [Suspect]
     Active Substance: OMEPRAZOLE
     Indication: Prophylaxis
     Dosage: OMEPRAZOL, 1-0-0
     Route: 048
     Dates: start: 20230811, end: 20230818
  4. AMOXICILLIN\CLAVULANIC ACID [Suspect]
     Active Substance: AMOXICILLIN\CLAVULANIC ACID
     Indication: Pneumonia
     Dosage: 1,000 MG/200 MG
     Route: 042
     Dates: start: 20230809, end: 20230817
  5. METAMIZOLE [Suspect]
     Active Substance: METAMIZOLE
     Indication: Analgesic therapy
     Dosage: 5 ML 1-1-1
     Route: 042
     Dates: start: 20230809, end: 20230816

REACTIONS (1)
  - Hepatic cytolysis [Recovered/Resolved]

NARRATIVE: CASE EVENT DATE: 20230814
